FAERS Safety Report 23573093 (Version 1)
Quarter: 2024Q1

REPORT INFORMATION
  Report Type: Spontaneous
  Country: US (occurrence: US)
  Receive Date: 20240227
  Receipt Date: 20240227
  Transmission Date: 20240410
  Serious: No
  Sender: FDA-Public Use
  Company Number: US-SANDOZ-SDZ2024US017874

PATIENT
  Sex: Female

DRUGS (1)
  1. ALBUTEROL SULFATE [Suspect]
     Active Substance: ALBUTEROL SULFATE
     Indication: Bronchitis
     Dosage: UNK UNK, BID, USES 2 PUFFS
     Route: 048

REACTIONS (4)
  - Product dispensing error [Unknown]
  - Off label use [Unknown]
  - Product dose omission issue [Unknown]
  - Device defective [Unknown]
